FAERS Safety Report 9790772 (Version 1)
Quarter: 2013Q4

REPORT INFORMATION
  Report Type: Spontaneous
  Country: US (occurrence: US)
  Receive Date: 20131231
  Receipt Date: 20131231
  Transmission Date: 20140711
  Serious: No
  Sender: FDA-Public Use
  Company Number: US-PFIZER INC-2013374488

PATIENT
  Age: 30 Year
  Sex: Male
  Weight: 90.7 kg

DRUGS (2)
  1. EFFEXOR XR [Suspect]
     Indication: DEPRESSION
     Dosage: 2 DF (TWO CAPSULES TOGETHER), 1X/DAY
     Dates: start: 2012, end: 2012
  2. SEROQUEL [Concomitant]
     Dosage: UNK

REACTIONS (3)
  - Dry mouth [Recovered/Resolved]
  - Dizziness [Recovered/Resolved]
  - Decreased appetite [Recovered/Resolved]
